FAERS Safety Report 25916477 (Version 1)
Quarter: 2025Q4

REPORT INFORMATION
  Report Type: Spontaneous
  Country: US (occurrence: US)
  Receive Date: 20251014
  Receipt Date: 20251014
  Transmission Date: 20260118
  Serious: No
  Sender: STRIDES
  Company Number: US-STRIDES ARCOLAB LIMITED-2025SP012338

PATIENT
  Age: 41 Year
  Sex: Female

DRUGS (10)
  1. GABAPENTIN [Suspect]
     Active Substance: GABAPENTIN
     Indication: Major depression
     Dosage: UNK
     Route: 065
  2. FLUOXETINE [Suspect]
     Active Substance: FLUOXETINE HYDROCHLORIDE
     Indication: Major depression
     Dosage: UNK
     Route: 065
  3. LITHIUM [Interacting]
     Active Substance: LITHIUM
     Indication: Major depression
     Dosage: 300 MILLIGRAM, BID, EXTENDED-RELEASE THERAPY
     Route: 048
  4. LITHIUM [Interacting]
     Active Substance: LITHIUM
     Dosage: 600 MILLIGRAM, BID, EXTENDED-RELEASE THERAPY
     Route: 048
  5. LITHIUM [Interacting]
     Active Substance: LITHIUM
     Dosage: 750 MILLIGRAM, BID, EXTENDED-RELEASE THERAPY
     Route: 065
  6. CLONAZEPAM [Suspect]
     Active Substance: CLONAZEPAM
     Indication: Major depression
     Dosage: UNK
     Route: 065
  7. LURASIDONE [Suspect]
     Active Substance: LURASIDONE
     Indication: Major depression
     Dosage: UNK
     Route: 065
  8. PRAZOSIN [Suspect]
     Active Substance: PRAZOSIN
     Indication: Major depression
     Dosage: UNK
     Route: 065
  9. PROPRANOLOL [Suspect]
     Active Substance: PROPRANOLOL HYDROCHLORIDE
     Indication: Major depression
     Dosage: UNK
     Route: 065
  10. QUETIAPINE [Suspect]
     Active Substance: QUETIAPINE
     Indication: Major depression
     Dosage: UNK
     Route: 065

REACTIONS (4)
  - Eating disorder [Unknown]
  - Condition aggravated [Unknown]
  - Weight increased [Unknown]
  - Off label use [Unknown]
